FAERS Safety Report 6470129-5 (Version None)
Quarter: 2009Q4

REPORT INFORMATION
  Report Type: 
  Country: None (occurrence: None)
  Receive Date: 20091203
  Receipt Date: 20080808
  Transmission Date: 20100525
  Serious: Yes (Death, Other)
  Sender: FDA-Public Use
  Company Number: US-ELI_LILLY_AND_COMPANY-US200712004478

PATIENT
  Age: 52 Year
  Sex: Female

DRUGS (6)
  1. CYMBALTA [Suspect]
     Indication: DEPRESSION
     Dosage: 90 MG, DAILY (1/D)
     Dates: start: 20060101
  2. CYMBALTA [Suspect]
     Dosage: 120 MG, UNK
     Route: 048
     Dates: end: 20071127
  3. OXYCONTIN [Concomitant]
     Indication: PAIN
  4. KLONOPIN [Concomitant]
     Dosage: 1 MG, 2/D
  5. FLUOXETINE [Concomitant]
     Dates: start: 20071127
  6. DILAUDID [Concomitant]

REACTIONS (7)
  - ARTERIOSCLEROSIS [None]
  - DEHYDRATION [None]
  - DIZZINESS [None]
  - GASTROINTESTINAL DISORDER [None]
  - MYOCARDIAL INFARCTION [None]
  - OEDEMA [None]
  - WEIGHT INCREASED [None]
